FAERS Safety Report 5749729-3 (Version None)
Quarter: 2008Q2

REPORT INFORMATION
  Report Type: 
  Country: None (occurrence: None)
  Receive Date: 20080527
  Receipt Date: 20080521
  Transmission Date: 20081010
  Serious: Yes (Life-Threatening, Hospitalization)
  Sender: FDA-Public Use
  Company Number: ZA-GILEAD-2008-0016205

PATIENT
  Sex: Female
  Weight: 66.9 kg

DRUGS (7)
  1. TRUVADA [Suspect]
     Indication: HIV INFECTION
     Route: 048
     Dates: start: 20080207
  2. EFAVIRENZ [Suspect]
     Indication: HIV INFECTION
     Route: 048
     Dates: start: 20080221
  3. BACTRIM [Concomitant]
     Indication: PROPHYLAXIS
     Route: 048
  4. RIFAFOUR [Concomitant]
     Indication: PULMONARY TUBERCULOSIS
     Route: 048
     Dates: end: 20080402
  5. CIPROBAY [Concomitant]
     Indication: PULMONARY TUBERCULOSIS
     Dates: start: 20080403
  6. STREPTOMYCINE [Concomitant]
     Indication: PULMONARY TUBERCULOSIS
     Dates: start: 20080403
  7. ETHAMBUTOL HYDROCHLORIDE [Concomitant]
     Indication: PULMONARY TUBERCULOSIS
     Dates: start: 20080403

REACTIONS (2)
  - ANAEMIA [None]
  - HYPERBILIRUBINAEMIA [None]
